FAERS Safety Report 5594583-6 (Version None)
Quarter: 2008Q1

REPORT INFORMATION
  Report Type: 
  Country: None (occurrence: None)
  Receive Date: 20080117
  Receipt Date: 20070117
  Transmission Date: 20080703
  Serious: No
  Sender: FDA-Public Use
  Company Number: US-ABBOTT-07P-163-0357101-00

PATIENT
  Sex: Male
  Weight: 102 kg

DRUGS (1)
  1. TRICOR [Suspect]
     Indication: BLOOD CHOLESTEROL
     Route: 048
     Dates: start: 20040101, end: 20070101

REACTIONS (2)
  - GLUCOSE TOLERANCE IMPAIRED [None]
  - MUSCLE SPASMS [None]
